FAERS Safety Report 15175721 (Version 1)
Quarter: 2018Q3

REPORT INFORMATION
  Report Type: Spontaneous
  Country: US (occurrence: US)
  Receive Date: 20180720
  Receipt Date: 20180720
  Transmission Date: 20181010
  Serious: Yes (Other)
  Sender: FDA-Public Use
  Company Number: US-PTC THERAPEUTICS, INC.-US-2018PTC000685

PATIENT

DRUGS (3)
  1. EMFLAZA [Suspect]
     Active Substance: DEFLAZACORT
     Indication: MUSCULAR DYSTROPHY
     Dosage: 30 MG, QD
     Route: 048
     Dates: start: 20170627
  2. EMFLAZA [Suspect]
     Active Substance: DEFLAZACORT
     Dosage: 30 MG, ONLY WEEKEND
     Route: 048
  3. EMFLAZA [Suspect]
     Active Substance: DEFLAZACORT
     Dosage: 30 MG, QD
     Route: 048

REACTIONS (2)
  - Off label use [Unknown]
  - Scoliosis [Not Recovered/Not Resolved]
